FAERS Safety Report 8845958 (Version 2)
Quarter: 2012Q4

REPORT INFORMATION
  Report Type: Report from Study
  Country: US (occurrence: US)
  Receive Date: 20121017
  Receipt Date: 20121115
  Transmission Date: 20130627
  Serious: Yes (Hospitalization)
  Sender: FDA-Public Use
  Company Number: US-US-EMD SERONO, INC.-7167068

PATIENT
  Sex: Male

DRUGS (6)
  1. SAIZEN [(SOMATROPIN (RDNA ORIGIN) FOR INJECTION)] [Suspect]
     Indication: HYPOPITUITARISM
     Route: 058
     Dates: start: 20091018
  2. SAIZEN [(SOMATROPIN (RDNA ORIGIN) FOR INJECTION)] [Suspect]
     Dates: end: 201108
  3. CORTEF [Concomitant]
     Indication: ADRENAL INSUFFICIENCY
     Route: 048
  4. CORTEF [Concomitant]
     Route: 048
  5. SYNTHROID [Concomitant]
     Indication: HYPOTHYROIDISM
     Route: 048
  6. DDAVP [Concomitant]
     Indication: DIABETES INSIPIDUS
     Route: 048

REACTIONS (5)
  - Suicide attempt [Unknown]
  - Depression [Unknown]
  - Increased appetite [Unknown]
  - Weight increased [Unknown]
  - Headache [Recovered/Resolved]
